FAERS Safety Report 8322153-5 (Version None)
Quarter: 2012Q2

REPORT INFORMATION
  Report Type: 
  Country: None (occurrence: None)
  Receive Date: 20120430
  Receipt Date: 20091228
  Transmission Date: 20120825
  Serious: No
  Sender: FDA-Public Use
  Company Number: US-TEVA-2009029901

PATIENT
  Sex: Female
  Weight: 58.112 kg

DRUGS (5)
  1. METHADONE HCL [Concomitant]
     Indication: PAIN
     Dates: start: 20080101
  2. NUVIGIL [Suspect]
     Indication: POOR QUALITY SLEEP
     Dosage: 150 MILLIGRAM;
     Route: 048
     Dates: start: 20091228
  3. XANAX [Concomitant]
     Indication: ANXIETY
     Dates: start: 20090401
  4. PERCOCET [Concomitant]
     Indication: PAIN
     Dates: start: 20040101
  5. SEASONIQUE [Concomitant]
     Indication: CONTRACEPTION

REACTIONS (2)
  - ANXIETY [None]
  - NAUSEA [None]
